FAERS Safety Report 25187846 (Version 2)
Quarter: 2025Q2

REPORT INFORMATION
  Report Type: Spontaneous
  Country: US (occurrence: US)
  Receive Date: 20250411
  Receipt Date: 20250430
  Transmission Date: 20250717
  Serious: Yes (Hospitalization)
  Sender: ELI LILLY AND COMPANY
  Company Number: US-ELI_LILLY_AND_COMPANY-US202504009914

PATIENT
  Age: 45 Year
  Sex: Female
  Weight: 60.1 kg

DRUGS (11)
  1. PEMETREXED [Suspect]
     Active Substance: PEMETREXED
     Indication: Neoplasm
     Route: 042
     Dates: start: 20241121
  2. SEROQUEL [Concomitant]
     Active Substance: QUETIAPINE FUMARATE
     Indication: Premedication
     Dosage: 25 MG, DAILY
     Route: 048
     Dates: start: 20230101
  3. ZOLPIDEM [Concomitant]
     Active Substance: ZOLPIDEM TARTRATE
     Indication: Premedication
     Route: 048
     Dates: start: 20230804
  4. FLUOXETINE [Concomitant]
     Active Substance: FLUOXETINE HYDROCHLORIDE
     Indication: Premedication
     Route: 048
     Dates: start: 20190101
  5. CLOBETASOL [Concomitant]
     Active Substance: CLOBETASOL
     Indication: Premedication
     Route: 061
     Dates: start: 20241201
  6. FUROSEMIDE [Concomitant]
     Active Substance: FUROSEMIDE
     Indication: Premedication
     Route: 048
     Dates: start: 20250110
  7. ADDERALL [Concomitant]
     Active Substance: AMPHETAMINE ASPARTATE\AMPHETAMINE SULFATE\DEXTROAMPHETAMINE SACCHARATE\DEXTROAMPHETAMINE SULFATE
     Indication: Premedication
     Dosage: 30 MG, BID
     Route: 048
     Dates: start: 20240917
  8. POTASSIUM CHLORIDE [Concomitant]
     Active Substance: POTASSIUM CHLORIDE
     Indication: Prophylaxis
     Dosage: 10 MEQ, TID
     Route: 048
     Dates: start: 20241119
  9. FOLIC ACID [Concomitant]
     Active Substance: FOLIC ACID
     Indication: Prophylaxis
     Dosage: 400 UG, DAILY
     Route: 048
     Dates: start: 20241119
  10. MAGNESIUM OXIDE [Concomitant]
     Active Substance: MAGNESIUM OXIDE
     Indication: Prophylaxis
     Dosage: 400 MG, BID
     Route: 048
     Dates: start: 20241127
  11. CRESTOR [Concomitant]
     Active Substance: ROSUVASTATIN CALCIUM
     Indication: Premedication
     Route: 048
     Dates: start: 20080101

REACTIONS (1)
  - Dyspnoea [Recovered/Resolved]

NARRATIVE: CASE EVENT DATE: 20250328
